APPROVED DRUG PRODUCT: DOXAZOSIN MESYLATE
Active Ingredient: DOXAZOSIN MESYLATE
Strength: EQ 2MG BASE
Dosage Form/Route: TABLET;ORAL
Application: A075646 | Product #002
Applicant: CHARTWELL RX SCIENCES LLC
Approved: Oct 18, 2000 | RLD: No | RS: No | Type: DISCN